FAERS Safety Report 8779439 (Version 1)
Quarter: 2012Q4

REPORT INFORMATION
  Report Type: 
  Country: US (occurrence: US)
  Receive Date: 20120912
  Receipt Date: 20120912
  Transmission Date: 20130627
  Serious: Yes (Other)
  Sender: FDA-Public Use
  Company Number: US-JNJFOC-20120901708

PATIENT
  Sex: Female
  Weight: 111.13 kg

DRUGS (2)
  1. ELMIRON [Suspect]
     Indication: CYSTITIS INTERSTITIAL
     Dosage: 1 or 2 capsules in a day
     Route: 048
     Dates: start: 2002
  2. ELMIRON [Suspect]
     Indication: CYSTITIS INTERSTITIAL
     Dosage: 1 or 2 capsules in a day
     Route: 048
     Dates: end: 2008

REACTIONS (1)
  - Surgery [Unknown]
